FAERS Safety Report 8256456-X (Version None)
Quarter: 2012Q2

REPORT INFORMATION
  Report Type: 
  Country: None (occurrence: None)
  Receive Date: 20120403
  Receipt Date: 20120327
  Transmission Date: 20120825
  Serious: Yes (Hospitalization)
  Sender: FDA-Public Use
  Company Number: JP-ABBOTT-12P-087-0899362-00

PATIENT
  Sex: Female
  Weight: 52 kg

DRUGS (10)
  1. GARENOXACIN MESYLATE [Suspect]
     Indication: SINUSITIS
     Route: 048
     Dates: start: 20111222, end: 20111222
  2. SISAAL [Concomitant]
     Indication: COUGH
     Dosage: DAILY DOSE 45 MG
     Route: 048
     Dates: start: 20111221, end: 20111222
  3. CELESTAMINE TAB [Concomitant]
     Indication: COUGH
     Route: 048
     Dates: start: 20111221, end: 20111222
  4. ADVAIR DISKUS 100/50 [Concomitant]
     Indication: COUGH
     Dosage: DAILY DOSE 500 MCG
     Route: 055
     Dates: start: 20111221, end: 20111222
  5. CLARITHROMYCIN [Suspect]
     Indication: SINUSITIS
     Route: 048
     Dates: start: 20111222, end: 20111222
  6. METHISTA [Concomitant]
     Indication: PRODUCTIVE COUGH
     Dosage: DAILY DOSE 1500 MG
     Route: 048
     Dates: start: 20111221, end: 20111222
  7. MONTELUKAST SODIUM [Concomitant]
     Indication: COUGH
     Dosage: DAILY DOSE 10 MG
     Route: 048
     Dates: start: 20111221, end: 20111222
  8. INDOMETHACIN [Concomitant]
     Indication: OROPHARYNGEAL PAIN
     Dosage: DAILY DOSE 75 MG
     Route: 048
     Dates: start: 20111221, end: 20111222
  9. REBAMIPIDE [Concomitant]
     Indication: GASTRIC DISORDER
     Dosage: DAILY DOSE 300 MG
     Route: 048
     Dates: start: 20111221, end: 20111222
  10. REBAMIPIDE [Concomitant]
     Indication: PROPHYLAXIS

REACTIONS (4)
  - ANAPHYLACTIC SHOCK [None]
  - URTICARIA [None]
  - LOSS OF CONSCIOUSNESS [None]
  - SWELLING FACE [None]
